FAERS Safety Report 4648131-5 (Version None)
Quarter: 2005Q2

REPORT INFORMATION
  Report Type: 
  Country: None (occurrence: None)
  Receive Date: 20050428
  Receipt Date: 20050314
  Transmission Date: 20051028
  Serious: Yes (Death)
  Sender: FDA-Public Use
  Company Number: JP-MERCK-0503USA03105

PATIENT
  Weight: 1 kg

DRUGS (1)
  1. INDOCIN I.V. [Suspect]
     Route: 042

REACTIONS (2)
  - CEREBRAL HAEMORRHAGE NEONATAL [None]
  - HAEMORRHAGE INTRACRANIAL [None]
